FAERS Safety Report 14689364 (Version 1)
Quarter: 2018Q1

REPORT INFORMATION
  Report Type: Spontaneous
  Country: IN (occurrence: IN)
  Receive Date: 20180328
  Receipt Date: 20180328
  Transmission Date: 20180509
  Serious: Yes (Death, Hospitalization, Other)
  Sender: FDA-Public Use
  Company Number: IN-SA-2018SA084486

PATIENT
  Age: 45 Year
  Sex: Female

DRUGS (9)
  1. RIFAMPICIN [Suspect]
     Active Substance: RIFAMPIN
     Indication: LEPROSY
     Route: 065
  2. PREDNISOLONE. [Suspect]
     Active Substance: PREDNISOLONE
     Indication: DRUG REACTION WITH EOSINOPHILIA AND SYSTEMIC SYMPTOMS
     Route: 065
  3. CHOLECALCIFEROL [Concomitant]
     Active Substance: CHOLECALCIFEROL
     Dosage: CHOLECALCIFEROL POWDER 60,000 IU ONCE A WEEK FOR 4 WEEKS
     Route: 065
  4. LEVOTHYROXINE. [Concomitant]
     Active Substance: LEVOTHYROXINE
     Route: 065
  5. DAPSONE. [Suspect]
     Active Substance: DAPSONE
     Indication: LEPROSY
     Route: 065
  6. RANITIDINE. [Concomitant]
     Active Substance: RANITIDINE
     Route: 065
  7. PREDNISOLONE. [Suspect]
     Active Substance: PREDNISOLONE
     Indication: DRUG REACTION WITH EOSINOPHILIA AND SYSTEMIC SYMPTOMS
     Dosage: SUBSEQUENT TAPERING OF THE DOSE
     Route: 065
  8. CALCIUM LACTATE [Concomitant]
     Active Substance: CALCIUM LACTATE
     Dosage: TABLET CALCIUM LACTATE (500 MG) (2 TABLETS/DAY)
     Route: 065
  9. ALBENDAZOLE [Concomitant]
     Active Substance: ALBENDAZOLE
     Route: 065

REACTIONS (18)
  - Leukocytosis [Fatal]
  - Condition aggravated [Fatal]
  - Sepsis [Fatal]
  - Dermatitis exfoliative generalised [Fatal]
  - Generalised oedema [Fatal]
  - Generalised erythema [Fatal]
  - Acute kidney injury [Unknown]
  - Alanine aminotransferase increased [Fatal]
  - Productive cough [Fatal]
  - Blood urea increased [Fatal]
  - Drug reaction with eosinophilia and systemic symptoms [Fatal]
  - Pyrexia [Fatal]
  - Skin exfoliation [Fatal]
  - Septic shock [Fatal]
  - Aspartate aminotransferase increased [Fatal]
  - Diabetes mellitus [Unknown]
  - Blood creatinine increased [Fatal]
  - Lower respiratory tract infection [Fatal]
